FAERS Safety Report 21852134 (Version 1)
Quarter: 2023Q1

REPORT INFORMATION
  Report Type: Spontaneous
  Country: US (occurrence: US)
  Receive Date: 20230112
  Receipt Date: 20230112
  Transmission Date: 20230418
  Serious: No
  Sender: FDA-Public Use
  Company Number: US-002147023-NVSC2023US005054

PATIENT
  Sex: Male

DRUGS (1)
  1. LEQVIO [Suspect]
     Active Substance: INCLISIRAN SODIUM
     Indication: Arteriosclerosis
     Dosage: 284 MG (284 MG/1.5 ML)
     Route: 058
     Dates: start: 20220801, end: 20230109

REACTIONS (2)
  - Vertigo [Recovered/Resolved]
  - Vertigo [Recovered/Resolved]
